FAERS Safety Report 15369461 (Version 1)
Quarter: 2018Q4

REPORT INFORMATION
  Report Type: Spontaneous
  Country: US (occurrence: US)
  Receive Date: 20180911
  Receipt Date: 20180911
  Transmission Date: 20190204
  Serious: Yes (Other)
  Sender: FDA-Public Use
  Company Number: US-PROCTER_AND_GAMBLE-GS18098542

PATIENT

DRUGS (3)
  1. SAFEGUARD ANTIBACTERIAL BAR BEIGE [Suspect]
     Active Substance: TRICLOCARBAN
     Dosage: UNK
     Route: 061
     Dates: start: 20180821
  2. SAFEGUARD ANTIBACTERIAL BAR BEIGE [Suspect]
     Active Substance: TRICLOCARBAN
     Dosage: UNK
     Route: 061
     Dates: start: 20180811
  3. SAFEGUARD ANTIBACTERIAL BAR BEIGE [Suspect]
     Active Substance: TRICLOCARBAN
     Dosage: UNK
     Route: 061
     Dates: start: 20180815

REACTIONS (1)
  - Pain [Recovered/Resolved]
